FAERS Safety Report 8115102-6 (Version None)
Quarter: 2012Q1

REPORT INFORMATION
  Report Type: 
  Country: None (occurrence: None)
  Receive Date: 20120206
  Receipt Date: 20120126
  Transmission Date: 20120608
  Serious: Yes (Other)
  Sender: FDA-Public Use
  Company Number: SE-ASTRAZENECA-2012SE06769

PATIENT
  Age: 24748 Day
  Sex: Male

DRUGS (9)
  1. SIMVASTATIN [Concomitant]
     Indication: HYPERCHOLESTEROLAEMIA
     Route: 048
  2. NITROLINGUAL [Concomitant]
     Indication: CHEST PAIN
     Route: 060
  3. RANITIDINE HCL [Concomitant]
     Indication: DYSPEPSIA
     Route: 048
  4. ALLOPURINOL [Concomitant]
     Indication: GOUT
     Route: 048
  5. ASPIRIN [Concomitant]
     Route: 048
     Dates: end: 20120125
  6. METOPROLOL SUCCINATE [Concomitant]
     Indication: ACUTE MYOCARDIAL INFARCTION
     Route: 048
  7. RAMIPRIL [Concomitant]
     Indication: HYPERTENSION
     Route: 048
  8. AMLODIPINE [Concomitant]
     Indication: HYPERTENSION
     Route: 048
  9. PLAVIX [Suspect]
     Indication: CORONARY ARTERY DISEASE
     Route: 048
     Dates: start: 20111018, end: 20120125

REACTIONS (1)
  - DUODENAL ULCER [None]
